FAERS Safety Report 12816257 (Version 1)
Quarter: 2016Q4

REPORT INFORMATION
  Report Type: Spontaneous
  Country: JP (occurrence: JP)
  Receive Date: 20161006
  Receipt Date: 20161006
  Transmission Date: 20170207
  Serious: No
  Sender: FDA-Public Use
  Company Number: JP-NOVEN PHARMACEUTICALS, INC.-JP2015000864

PATIENT
  Age: 24 Year
  Sex: Female

DRUGS (3)
  1. VOLTAREN [Suspect]
     Active Substance: DICLOFENAC SODIUM
     Indication: DYSMENORRHOEA
     Dosage: 3 TABLET, UNKNOWN
     Route: 065
     Dates: start: 20150803
  2. ESTRADIOL/NORETHISTERONE ACETATE [Suspect]
     Active Substance: ESTRADIOL\NORETHINDRONE ACETATE
     Indication: DYSMENORRHOEA
     Dosage: 1 DF, UNKNOWN
     Route: 062
     Dates: start: 20150905, end: 20150905
  3. DUVADILAN [Suspect]
     Active Substance: ISOXSUPRINE HYDROCHLORIDE
     Indication: DYSMENORRHOEA
     Dosage: 3 TABLET, UNKNOWN
     Route: 065
     Dates: start: 20150803

REACTIONS (3)
  - Headache [Recovered/Resolved]
  - Nausea [Recovered/Resolved]
  - Hot flush [Recovered/Resolved]

NARRATIVE: CASE EVENT DATE: 20150905
